FAERS Safety Report 7432654-X (Version None)
Quarter: 2011Q2

REPORT INFORMATION
  Report Type: 
  Country: None (occurrence: None)
  Receive Date: 20110422
  Receipt Date: 20110411
  Transmission Date: 20111010
  Serious: Yes (Hospitalization, Other)
  Sender: FDA-Public Use
  Company Number: US-ROCHE-734368

PATIENT
  Sex: Female
  Weight: 76.2 kg

DRUGS (2)
  1. ACCUTANE [Suspect]
     Indication: ACNE
     Route: 065
     Dates: start: 20001028, end: 20031001
  2. AMNESTEEM [Suspect]
     Indication: ACNE
     Route: 065
     Dates: start: 20040509, end: 20050601

REACTIONS (5)
  - DEPRESSION [None]
  - COLITIS [None]
  - SMALL INTESTINAL OBSTRUCTION [None]
  - INTESTINAL RESECTION [None]
  - CROHN'S DISEASE [None]
